FAERS Safety Report 7730798-6 (Version None)
Quarter: 2011Q3

REPORT INFORMATION
  Report Type: 
  Country: None (occurrence: None)
  Receive Date: 20110906
  Receipt Date: 20110826
  Transmission Date: 20111222
  Serious: Yes (Hospitalization)
  Sender: FDA-Public Use
  Company Number: JP-JNJFOC-20110705919

PATIENT
  Age: 88 Year
  Sex: Female

DRUGS (7)
  1. GALANTAMINE HYDROBROMIDE [Suspect]
     Indication: DEMENTIA ALZHEIMER'S TYPE
     Route: 048
     Dates: start: 20110507, end: 20110601
  2. DOGMATYL [Concomitant]
     Indication: DYSPEPSIA
     Route: 048
  3. ASPIRIN [Concomitant]
     Route: 048
     Dates: start: 20100424
  4. DIOVAN [Concomitant]
     Route: 048
     Dates: start: 20100424
  5. LIVALO [Concomitant]
     Route: 065
     Dates: start: 20100424
  6. GALANTAMINE HYDROBROMIDE [Suspect]
     Route: 048
     Dates: start: 20110601, end: 20110704
  7. RISEDRONATE SODIUM [Concomitant]
     Route: 048
     Dates: start: 20100424

REACTIONS (6)
  - SOMNOLENCE [None]
  - RESTLESSNESS [None]
  - DEPRESSED LEVEL OF CONSCIOUSNESS [None]
  - INSOMNIA [None]
  - MENTAL STATUS CHANGES [None]
  - DECREASED APPETITE [None]
